FAERS Safety Report 13429177 (Version 1)
Quarter: 2017Q2

REPORT INFORMATION
  Report Type: Spontaneous
  Country: US (occurrence: US)
  Receive Date: 20170411
  Receipt Date: 20170411
  Transmission Date: 20170830
  Serious: Yes (Death, Hospitalization, Other)
  Sender: FDA-Public Use
  Company Number: PHEH2017US010211

PATIENT
  Sex: Female

DRUGS (1)
  1. FARYDAK [Suspect]
     Active Substance: PANOBINOSTAT
     Indication: PLASMA CELL MYELOMA
     Route: 065

REACTIONS (10)
  - Diarrhoea [Unknown]
  - Internal haemorrhage [Unknown]
  - Staphylococcal infection [Unknown]
  - Plasma cell myeloma [Unknown]
  - Malignant neoplasm progression [Unknown]
  - Spinal compression fracture [Unknown]
  - Death [Fatal]
  - Device related infection [Unknown]
  - International normalised ratio increased [Unknown]
  - Paralysis [Unknown]

NARRATIVE: CASE EVENT DATE: 20170228
